FAERS Safety Report 4519298-4 (Version None)
Quarter: 2004Q4

REPORT INFORMATION
  Report Type: 
  Country: None (occurrence: None)
  Receive Date: 20041201
  Receipt Date: 20041122
  Transmission Date: 20050328
  Serious: Yes (Hospitalization)
  Sender: FDA-Public Use
  Company Number: 2004096810

PATIENT
  Age: 82 Year
  Sex: Female
  Weight: 58.9676 kg

DRUGS (8)
  1. DETROL LA [Suspect]
     Indication: HYPERTONIC BLADDER
     Dosage: 4 + 8 + 12MG (4 MG, INTERVAL QD/BD/TID ORAL) - SEE IMAGE
     Route: 048
     Dates: start: 20040801
  2. ASPIRIN [Concomitant]
  3. HYDROCHLOROTHIAZIDE (ACETYLSALICYCLIC ACID) [Concomitant]
  4. IRON (IRON) [Concomitant]
  5. ERGOCALCIRFEROL (EROGOCALCIFEROL) [Concomitant]
  6. LEVOTHYROXINE SODIUM [Concomitant]
  7. CLOPIDOGREL BISULFATE [Concomitant]
  8. ESTROGENS CONJUGATED 9ESTROGENS CONJUGATED) [Concomitant]

REACTIONS (2)
  - BACTERIAL INFECTION [None]
  - DRUG INEFFECTIVE [None]
